FAERS Safety Report 6665214-9 (Version None)
Quarter: 2010Q1

REPORT INFORMATION
  Report Type: 
  Country: None (occurrence: None)
  Receive Date: 20100330
  Receipt Date: 20100315
  Transmission Date: 20100710
  Serious: Yes (Hospitalization)
  Sender: FDA-Public Use
  Company Number: 008285

PATIENT
  Sex: Male

DRUGS (2)
  1. KEPPRA [Suspect]
     Indication: ENCEPHALITIS
     Dosage: 10 MG QD, SINGLE ADMINISTRATION ORAL
     Route: 048
  2. KEPPRA [Suspect]
     Indication: STATUS EPILEPTICUS
     Dosage: 10 MG QD, SINGLE ADMINISTRATION ORAL
     Route: 048

REACTIONS (2)
  - HALLUCINATION, VISUAL [None]
  - PANIC REACTION [None]
